FAERS Safety Report 12519549 (Version 1)
Quarter: 2016Q2

REPORT INFORMATION
  Report Type: Spontaneous
  Country: US (occurrence: US)
  Receive Date: 20160630
  Receipt Date: 20160630
  Transmission Date: 20160815
  Serious: No
  Sender: FDA-Public Use
  Company Number: US-RECKITT BENCKISER HEALTHCARE INT LIMITED-RB-83783-2016

PATIENT
  Age: 74 Year
  Sex: Female

DRUGS (2)
  1. MUCINEX [Suspect]
     Active Substance: GUAIFENESIN
     Indication: SECRETION DISCHARGE
     Dosage: 1 DF, QD
     Route: 065
     Dates: start: 20160301, end: 201603
  2. MUCINEX [Suspect]
     Active Substance: GUAIFENESIN
     Dosage: 2 DF, QD (DAILY)
     Route: 065
     Dates: start: 201603

REACTIONS (2)
  - Drug ineffective [Not Recovered/Not Resolved]
  - Product use issue [Unknown]
